FAERS Safety Report 13418134 (Version 5)
Quarter: 2021Q2

REPORT INFORMATION
  Report Type: Report from Study
  Country: IT (occurrence: IT)
  Receive Date: 20170407
  Receipt Date: 20210526
  Transmission Date: 20210716
  Serious: Yes (Life-Threatening, Hospitalization, Other)
  Sender: FDA-Public Use
  Company Number: IT-BRISTOL-MYERS SQUIBB COMPANY-BMS-2017-029521

PATIENT
  Age: 46 Year
  Sex: Female
  Weight: 64 kg

DRUGS (2)
  1. IPILIMUMAB [Suspect]
     Active Substance: IPILIMUMAB
     Indication: GASTRIC CANCER
     Dosage: 192 MG, UNK
     Route: 042
     Dates: start: 20170322, end: 20170322
  2. NIVOLUMAB [Suspect]
     Active Substance: NIVOLUMAB
     Indication: GASTRIC CANCER
     Dosage: 64 MG, UNK
     Route: 042
     Dates: start: 20170322, end: 20170322

REACTIONS (1)
  - Capillary leak syndrome [Recovered/Resolved with Sequelae]

NARRATIVE: CASE EVENT DATE: 20170402
